FAERS Safety Report 7407002-1 (Version None)
Quarter: 2011Q2

REPORT INFORMATION
  Report Type: 
  Country: None (occurrence: None)
  Receive Date: 20110411
  Receipt Date: 20110405
  Transmission Date: 20111010
  Serious: No
  Sender: FDA-Public Use
  Company Number: US-PFIZER INC-2011059501

PATIENT
  Sex: Female
  Weight: 54.875 kg

DRUGS (1)
  1. ADVIL LIQUI-GELS [Suspect]
     Indication: SWELLING
     Dosage: UNK, DAILY
     Route: 048
     Dates: start: 20010101

REACTIONS (1)
  - GLOSSODYNIA [None]
